FAERS Safety Report 25957336 (Version 1)
Quarter: 2025Q4

REPORT INFORMATION
  Report Type: Spontaneous
  Country: US (occurrence: US)
  Receive Date: 20251024
  Receipt Date: 20251024
  Transmission Date: 20260118
  Serious: No
  Sender: SEPTODONT
  Company Number: US-SEPTODONT-2024019302

PATIENT
  Age: 39 Year
  Sex: Male
  Weight: 100 kg

DRUGS (2)
  1. SEPTOCAINE [Suspect]
     Active Substance: ARTICAINE HYDROCHLORIDE\EPINEPHRINE BITARTRATE
     Indication: Dental local anaesthesia
     Dosage: -	5 CARPULES OF 4% SEPTOCAINE WITH 1:100,000 EPINEPHRINE WERE UTILIZED DURING A 3-HOUR APPOINTMENT
     Route: 065
  2. ESCITALOPRAM OXALATE [Concomitant]
     Active Substance: ESCITALOPRAM OXALATE
     Dosage: ESCITALOPRAM 20MG TABLET EVERY DAY

REACTIONS (3)
  - Drug effect less than expected [Unknown]
  - Procedural pain [Unknown]
  - Procedural haemorrhage [Unknown]
